FAERS Safety Report 5909981-8 (Version None)
Quarter: 2008Q4

REPORT INFORMATION
  Report Type: 
  Country: None (occurrence: None)
  Receive Date: 20081006
  Receipt Date: 20081006
  Transmission Date: 20090506
  Serious: Yes (Other)
  Sender: FDA-Public Use
  Company Number: None

PATIENT
  Age: 56 Year
  Sex: Female
  Weight: 65.7716 kg

DRUGS (1)
  1. ASTELIN [Suspect]
     Indication: MULTIPLE ALLERGIES
     Dosage: 2 SPRAYS IN EACH NOSTRIL ONCE NASAL
     Route: 045
     Dates: start: 20080928, end: 20081003

REACTIONS (4)
  - EXPIRED DRUG ADMINISTERED [None]
  - FEELING ABNORMAL [None]
  - PAIN [None]
  - PARAESTHESIA [None]
